FAERS Safety Report 5853639-0 (Version None)
Quarter: 2008Q3

REPORT INFORMATION
  Report Type: 
  Country: None (occurrence: None)
  Receive Date: 20080822
  Receipt Date: 20080814
  Transmission Date: 20090109
  Serious: Yes (Hospitalization)
  Sender: FDA-Public Use
  Company Number: FR-NOVOPROD-277897

PATIENT
  Age: 64 Year
  Sex: Male

DRUGS (7)
  1. NOVOLOG MIX 70/30 [Suspect]
     Indication: DIABETES MELLITUS
     Route: 058
  2. GEMZAR [Suspect]
  3. TENORDATE [Concomitant]
     Route: 048
  4. ZYLORIC                            /00003301/ [Concomitant]
     Route: 048
  5. INEXIUM                            /01479302/ [Concomitant]
     Route: 048
  6. FORLAX [Concomitant]
     Route: 048
  7. HUMALOG [Concomitant]
     Route: 058

REACTIONS (1)
  - VASCULITIS NECROTISING [None]
